FAERS Safety Report 6292966-2 (Version None)
Quarter: 2009Q3

REPORT INFORMATION
  Report Type: 
  Country: None (occurrence: None)
  Receive Date: 20090729
  Receipt Date: 20090716
  Transmission Date: 20100115
  Serious: Yes (Hospitalization)
  Sender: FDA-Public Use
  Company Number: TUK2009A00124

PATIENT
  Age: 75 Year
  Sex: Male

DRUGS (6)
  1. ACTOS [Suspect]
     Indication: DIABETES MELLITUS
     Dosage: (30 MG) ORAL
     Route: 048
     Dates: end: 20090629
  2. ASPIRIN [Concomitant]
  3. CITALOPRAM HYDROBROMIDE [Concomitant]
  4. METFORMIN HCL [Concomitant]
  5. PROCHLORPERAZINE MALEATE [Concomitant]
  6. ROSUVASTATIN CALCIUM [Concomitant]

REACTIONS (1)
  - PERICARDIAL EFFUSION [None]
